FAERS Safety Report 7179434-0 (Version None)
Quarter: 2010Q4

REPORT INFORMATION
  Report Type: 
  Country: None (occurrence: None)
  Receive Date: 20101208
  Receipt Date: 20101206
  Transmission Date: 20110411
  Serious: Yes (Other)
  Sender: FDA-Public Use
  Company Number: JHP201000348

PATIENT
  Age: 19 Year
  Sex: Female

DRUGS (1)
  1. KETALAR [Suspect]
     Indication: DRUG ABUSE

REACTIONS (5)
  - CONTRACTED BLADDER [None]
  - DRUG ABUSER [None]
  - HYDRONEPHROSIS [None]
  - REDUCED BLADDER CAPACITY [None]
  - RENAL FUNCTION TEST ABNORMAL [None]
